FAERS Safety Report 7640305-4 (Version None)
Quarter: 2011Q3

REPORT INFORMATION
  Report Type: 
  Country: None (occurrence: None)
  Receive Date: 20110728
  Receipt Date: 20110721
  Transmission Date: 20111222
  Serious: Yes (Other)
  Sender: FDA-Public Use
  Company Number: US-BAYER-2010-007941

PATIENT
  Age: 24 Year
  Sex: Female
  Weight: 75.737 kg

DRUGS (16)
  1. YASMIN [Suspect]
     Indication: CONTRACEPTION
     Dosage: UNK
     Route: 048
     Dates: start: 20070301, end: 20080901
  2. DROSPIRENONE AND ETHINYL ESTRADIOL [Suspect]
     Indication: CONTRACEPTION
     Dosage: UNK
     Route: 048
     Dates: start: 20070301, end: 20080901
  3. BUPROPION HYDROCHLORIDE [Concomitant]
     Dosage: 100 MG, UNK
     Route: 048
     Dates: start: 20080324, end: 20080915
  4. PANTOPRAZOLE SODIUM [Concomitant]
     Dosage: 40 MG, UNK
     Route: 048
     Dates: start: 20080530
  5. IMITREX [Concomitant]
     Dosage: 100 MG, UNK
     Route: 048
     Dates: start: 20080411, end: 20080711
  6. PROMETHAZINE [Concomitant]
     Dosage: 25 MG, UNK
     Route: 048
     Dates: start: 20080602
  7. PROTONIX [Concomitant]
     Indication: GASTRITIS
     Dosage: 40 MG, UNK
     Route: 048
     Dates: start: 20080411
  8. SEPTRA DS [Concomitant]
     Indication: BACTERIAL DISEASE CARRIER
     Dosage: UNK UNK, QD
     Dates: start: 20080612, end: 20080621
  9. PROTONIX [Concomitant]
     Indication: GASTROOESOPHAGEAL REFLUX DISEASE
  10. WELLBUTRIN [Concomitant]
     Indication: DEPRESSION
     Dosage: 300 MG, UNK
     Route: 048
     Dates: start: 20070101, end: 20080101
  11. ADVIL LIQUI-GELS [Concomitant]
     Indication: HEADACHE
     Dosage: UNK
     Dates: start: 20080411
  12. TOPAMAX [Concomitant]
     Dosage: 100 MG, UNK
     Route: 048
     Dates: start: 20080418, end: 20080822
  13. FLUCONAZOLE [Concomitant]
     Dosage: 150 MG, UNK
     Route: 048
     Dates: start: 20080612
  14. SULFAMETHOXAZOLE AND TRIMETHOPRIM [Concomitant]
     Dosage: UNK
     Route: 048
     Dates: start: 20080612
  15. ROLAIDS [Concomitant]
     Indication: GASTRITIS
     Dosage: UNK
     Dates: start: 20080605
  16. HYDROCODONE [HYDROCODONE] [Concomitant]
     Indication: DYSMENORRHOEA
     Dosage: UNK
     Dates: start: 20080411

REACTIONS (7)
  - GALLBLADDER DISORDER [None]
  - PAIN [None]
  - DIARRHOEA [None]
  - CHOLECYSTITIS CHRONIC [None]
  - INSOMNIA [None]
  - VOMITING [None]
  - CHOLELITHIASIS [None]
